APPROVED DRUG PRODUCT: IRBESARTAN
Active Ingredient: IRBESARTAN
Strength: 300MG
Dosage Form/Route: TABLET;ORAL
Application: A090201 | Product #003
Applicant: HIKMA PHARMACEUTICALS USA INC
Approved: Oct 15, 2012 | RLD: No | RS: No | Type: DISCN